FAERS Safety Report 15326602 (Version 11)
Quarter: 2019Q3

REPORT INFORMATION
  Report Type: Report from Study
  Country: None (occurrence: JP)
  Receive Date: 20180828
  Receipt Date: 20190912
  Transmission Date: 20191004
  Serious: Yes (Hospitalization, Other)
  Sender: FDA-Public Use
  Company Number: JP-ABBVIE-18S-087-2464004-00

PATIENT
  Age: 75 Year
  Sex: Male
  Weight: 58 kg

DRUGS (9)
  1. ROTIGOTINE [Concomitant]
     Active Substance: ROTIGOTINE
     Indication: PARKINSON^S DISEASE
     Route: 062
  2. FOLIC ACID. [Concomitant]
     Active Substance: FOLIC ACID
     Indication: PROPHYLAXIS
     Route: 048
  3. DUODOPA [Suspect]
     Active Substance: CARBIDOPA\LEVODOPA
     Dosage: 1.5 - 2 HOURS
     Route: 050
     Dates: start: 20180920, end: 20180920
  4. DUODOPA [Suspect]
     Active Substance: CARBIDOPA\LEVODOPA
     Indication: PARKINSON^S DISEASE
     Route: 050
     Dates: start: 20180602
  5. DUODOPA [Suspect]
     Active Substance: CARBIDOPA\LEVODOPA
     Dosage: MD: 7 ML?CD: 1.9 ML/HR ? 16 HRS?ED: 1.0 ML/UNIT ? 2
     Route: 050
     Dates: start: 20180802
  6. CARBIDOPA HYDRATE AND LEVODOPA [Concomitant]
     Indication: PARKINSON^S DISEASE
     Route: 048
     Dates: start: 200912
  7. CARBIDOPA HYDRATE AND LEVODOPA [Concomitant]
     Dates: start: 20190222
  8. METHOTREXATE. [Concomitant]
     Active Substance: METHOTREXATE
     Indication: PRODUCT USED FOR UNKNOWN INDICATION
     Route: 048
  9. DUODOPA [Suspect]
     Active Substance: CARBIDOPA\LEVODOPA
     Dosage: TUBE WAS CONNECTED TO THE CORRECT PLACE
     Route: 050
     Dates: start: 20180920, end: 20190221

REACTIONS (11)
  - Hypoaesthesia [Unknown]
  - Stoma site haemorrhage [Unknown]
  - On and off phenomenon [Unknown]
  - Gastric cancer [Unknown]
  - Musculoskeletal stiffness [Unknown]
  - Stoma site discharge [Recovering/Resolving]
  - Incorrect route of product administration [Recovered/Resolved]
  - Therapeutic response changed [Unknown]
  - Urinary retention [Recovered/Resolved]
  - Stoma site extravasation [Unknown]
  - Hypokinesia [Unknown]

NARRATIVE: CASE EVENT DATE: 2018
